FAERS Safety Report 6046706-2 (Version None)
Quarter: 2009Q1

REPORT INFORMATION
  Report Type: 
  Country: None (occurrence: None)
  Receive Date: 20090122
  Receipt Date: 20090109
  Transmission Date: 20090719
  Serious: Yes (Hospitalization, Other)
  Sender: FDA-Public Use
  Company Number: US-PFIZER INC-2009154341

PATIENT
  Sex: Female
  Weight: 58.05 kg

DRUGS (5)
  1. LYRICA [Suspect]
     Indication: FIBROMYALGIA
     Dates: start: 20080801, end: 20081001
  2. IBUPROFEN [Concomitant]
     Dosage: UNK
  3. SOMA [Concomitant]
     Dosage: 350 MG, 4X/DAY
  4. NORCO [Concomitant]
     Dosage: UNK
  5. PAXIL [Concomitant]
     Dosage: 20 MG, UNK

REACTIONS (6)
  - DIZZINESS [None]
  - FALL [None]
  - GRAND MAL CONVULSION [None]
  - HEAD INJURY [None]
  - VERTIGO [None]
  - VISION BLURRED [None]
